FAERS Safety Report 14870922 (Version 1)
Quarter: 2018Q2

REPORT INFORMATION
  Report Type: Spontaneous
  Country: US (occurrence: US)
  Receive Date: 20180509
  Receipt Date: 20180509
  Transmission Date: 20180711
  Serious: Yes (Other)
  Sender: FDA-Public Use
  Company Number: US-GLAXOSMITHKLINE-US2018081747

PATIENT
  Age: 70 Year
  Sex: Female

DRUGS (7)
  1. LAMICTAL [Suspect]
     Active Substance: LAMOTRIGINE
     Indication: PRODUCT USED FOR UNKNOWN INDICATION
     Dosage: 100 MG, TID
  2. ATORVASTATINE [Concomitant]
     Active Substance: ATORVASTATIN
  3. METOPROLOL. [Concomitant]
     Active Substance: METOPROLOL
  4. CLONAZEPAM. [Concomitant]
     Active Substance: CLONAZEPAM
  5. ASPIRIN (BABY) [Concomitant]
     Active Substance: ASPIRIN
  6. DULOXETINE. [Concomitant]
     Active Substance: DULOXETINE
  7. KEPPRA [Concomitant]
     Active Substance: LEVETIRACETAM

REACTIONS (1)
  - Seizure [Recovered/Resolved]

NARRATIVE: CASE EVENT DATE: 20180330
